FAERS Safety Report 17715675 (Version 1)
Quarter: 2020Q2

REPORT INFORMATION
  Report Type: Spontaneous
  Country: US (occurrence: US)
  Receive Date: 20200427
  Receipt Date: 20200427
  Transmission Date: 20200714
  Serious: No
  Sender: FDA-Public Use
  Company Number: US-APOTEX-2020AP009813

PATIENT
  Sex: Female

DRUGS (2)
  1. CARBIDOPA AND LEVODOPA [Suspect]
     Active Substance: CARBIDOPA\LEVODOPA
     Indication: PRODUCT USED FOR UNKNOWN INDICATION
     Dosage: UNK, Q.5H.
     Route: 065
     Dates: start: 201412
  2. CARBIDOPA AND LEVODOPA [Suspect]
     Active Substance: CARBIDOPA\LEVODOPA
     Indication: PRODUCT USED FOR UNKNOWN INDICATION
     Dosage: UNK UNK, Q.5H.
     Route: 065
     Dates: start: 201412

REACTIONS (3)
  - Ill-defined disorder [Unknown]
  - Product substitution issue [Unknown]
  - Drug ineffective [Unknown]
